FAERS Safety Report 12205046 (Version 2)
Quarter: 2016Q2

REPORT INFORMATION
  Report Type: Spontaneous
  Country: TR (occurrence: TR)
  Receive Date: 20160323
  Receipt Date: 20160427
  Transmission Date: 20160815
  Serious: Yes (Hospitalization, Other)
  Sender: FDA-Public Use
  Company Number: PHHY2016TR028546

PATIENT
  Age: 22 Year
  Sex: Female
  Weight: 55 kg

DRUGS (5)
  1. GILENYA [Suspect]
     Active Substance: FINGOLIMOD HYDROCHLORIDE
     Indication: MULTIPLE SCLEROSIS
     Dosage: 0.5 MG, QD
     Route: 048
     Dates: start: 20160127, end: 20160302
  2. GILENYA [Suspect]
     Active Substance: FINGOLIMOD HYDROCHLORIDE
     Dosage: 0.5 MG, QD
     Route: 048
  3. ZESTAT//MIRTAZAPINE [Concomitant]
     Indication: DEPRESSION
     Dosage: 1 DF, QD
     Route: 048
     Dates: end: 20160224
  4. MISOL [Concomitant]
     Indication: DEPRESSION
     Dosage: 0.5 DF, BID
     Route: 048
     Dates: start: 20160220, end: 20160224
  5. ARIPIPRAZOLE. [Concomitant]
     Active Substance: ARIPIPRAZOLE
     Indication: DEPRESSION
     Dosage: 0.5 DF, QD
     Route: 048
     Dates: start: 20160220, end: 20160224

REACTIONS (5)
  - Seizure [Recovered/Resolved]
  - Hypomania [Unknown]
  - Complex partial seizures [Unknown]
  - Confusional state [Recovered/Resolved]
  - Multiple sclerosis relapse [Recovered/Resolved]

NARRATIVE: CASE EVENT DATE: 20160223
